FAERS Safety Report 19722486 (Version 1)
Quarter: 2021Q3

REPORT INFORMATION
  Report Type: Spontaneous
  Country: CA (occurrence: CA)
  Receive Date: 20210819
  Receipt Date: 20210819
  Transmission Date: 20211014
  Serious: Yes (Other)
  Sender: FDA-Public Use
  Company Number: CA-ACCORD-235429

PATIENT
  Age: 60 Year
  Sex: Male

DRUGS (4)
  1. TOPIRAMATE. [Suspect]
     Active Substance: TOPIRAMATE
     Indication: MIGRAINE
     Route: 065
  2. CANDESARTAN. [Suspect]
     Active Substance: CANDESARTAN
     Indication: MIGRAINE
     Route: 048
  3. AMITRIPTYLINE [Concomitant]
     Active Substance: AMITRIPTYLINE
     Route: 065
  4. PROPRANOLOL [Suspect]
     Active Substance: PROPRANOLOL HYDROCHLORIDE
     Indication: MIGRAINE
     Route: 065

REACTIONS (5)
  - Contraindicated product administered [Unknown]
  - Drug intolerance [Unknown]
  - Off label use [Unknown]
  - Nephrolithiasis [Unknown]
  - Product use issue [Unknown]
